FAERS Safety Report 4644609-9 (Version None)
Quarter: 2005Q2

REPORT INFORMATION
  Report Type: 
  Country: None (occurrence: None)
  Receive Date: 20050426
  Receipt Date: 20050415
  Transmission Date: 20051028
  Serious: Yes (Death)
  Sender: FDA-Public Use
  Company Number: ZA-NOVOPROD-243588

PATIENT
  Age: 39 Year
  Sex: Male
  Weight: 90 kg

DRUGS (4)
  1. NOVOMIX 30 [Suspect]
     Indication: DIABETES MELLITUS INSULIN-DEPENDENT
     Dosage: 36+16
     Dates: start: 20041008
  2. NOVOMIX 30 [Suspect]
     Dosage: 42+20
  3. DISPRIN [Concomitant]
     Dates: start: 19990101
  4. DISPRIN [Concomitant]

REACTIONS (2)
  - CIRCULATORY COLLAPSE [None]
  - MYOCARDIAL INFARCTION [None]
